FAERS Safety Report 20517621 (Version 1)
Quarter: 2022Q1

REPORT INFORMATION
  Report Type: Spontaneous
  Country: US (occurrence: None)
  Receive Date: 20220224
  Receipt Date: 20220224
  Transmission Date: 20220423
  Serious: Yes (Hospitalization)
  Sender: FDA-Public Use
  Company Number: None

PATIENT
  Age: 62 Year
  Sex: Male
  Weight: 92.25 kg

DRUGS (10)
  1. GAMMAGARD LIQUID [Suspect]
     Active Substance: HUMAN IMMUNOGLOBULIN G
     Indication: Cerebellar ataxia
     Dosage: FREQUENCY : DAILY;?
     Route: 042
     Dates: start: 20211113, end: 20211114
  2. GAMMAGARD [Suspect]
     Active Substance: HUMAN IMMUNOGLOBULIN G
     Indication: Cerebellar ataxia
     Dosage: FREQUENCY : DAILY;?
     Route: 042
     Dates: start: 20211113, end: 20211114
  3. ATORVASTATIN [Concomitant]
     Active Substance: ATORVASTATIN
     Dates: start: 20211111
  4. Basaglar KwikPen SQ [Concomitant]
     Dates: start: 20211111
  5. CARVEDILOL [Concomitant]
     Active Substance: CARVEDILOL
     Dates: start: 20211111
  6. CLONIDINE [Concomitant]
     Active Substance: CLONIDINE
     Dates: start: 20211111
  7. ENALAPRIL [Concomitant]
     Active Substance: ENALAPRIL
     Dates: start: 20211111
  8. gapapentin 300mg [Concomitant]
     Dates: start: 20211111
  9. METFORMIN [Concomitant]
     Active Substance: METFORMIN HYDROCHLORIDE
     Dates: start: 20211111
  10. TRAZODONE [Concomitant]
     Active Substance: TRAZODONE HYDROCHLORIDE
     Dates: start: 20211111

REACTIONS (3)
  - Infusion related reaction [None]
  - Hypertension [None]
  - Chest discomfort [None]

NARRATIVE: CASE EVENT DATE: 20211114
